FAERS Safety Report 8909182 (Version 1)
Quarter: 2012Q4

REPORT INFORMATION
  Report Type: Spontaneous
  Country: PT (occurrence: None)
  Receive Date: 20121107
  Receipt Date: 20121107
  Transmission Date: 20130627
  Serious: Yes (Other)
  Sender: FDA-Public Use
  Company Number: PT-MACLEODS PHARMA-000038

PATIENT
  Age: 87 Year
  Sex: Male

DRUGS (6)
  1. LEVOFLOXACIN [Suspect]
     Indication: RESPIRATORY INFECTION
  2. DESLORATADINE(DESLORATADINE) [Concomitant]
  3. FUROSEMIDE(FUROSEMIDE) [Concomitant]
  4. AMINOPHYLLINE(AMINOPHYLLINE) [Concomitant]
  5. BECLOMETHASONE(BECLOMETHASONE) [Concomitant]
  6. INSULIN(INSULIN) [Concomitant]

REACTIONS (5)
  - Cholestasis [None]
  - Disorientation [None]
  - Hepatomegaly [None]
  - Hepatic steatosis [None]
  - Hepatocellular injury [None]
